FAERS Safety Report 24006385 (Version 1)
Quarter: 2024Q2

REPORT INFORMATION
  Report Type: Spontaneous
  Country: US (occurrence: US)
  Receive Date: 20240624
  Receipt Date: 20240624
  Transmission Date: 20240716
  Serious: Yes (Hospitalization, Other)
  Sender: FDA-Public Use
  Company Number: US-TORRENT-00013635

PATIENT
  Age: 35 Year
  Sex: Male

DRUGS (1)
  1. ARIPIPRAZOLE [Suspect]
     Active Substance: ARIPIPRAZOLE
     Indication: Psychiatric symptom
     Dosage: UNKNOWN
     Route: 065

REACTIONS (4)
  - Diabetic ketoacidosis [Unknown]
  - Hypertriglyceridaemia [Unknown]
  - Pancreatitis [Unknown]
  - Renal tubular necrosis [Unknown]
